FAERS Safety Report 8242502-6 (Version None)
Quarter: 2012Q1

REPORT INFORMATION
  Report Type: 
  Country: None (occurrence: None)
  Receive Date: 20120329
  Receipt Date: 20120319
  Transmission Date: 20120608
  Serious: Yes (Hospitalization)
  Sender: FDA-Public Use
  Company Number: FR-JNJFOC-20120313231

PATIENT
  Sex: Male

DRUGS (6)
  1. ACETAMINOPHEN AND TRAMADOL HCL [Suspect]
     Indication: BACK PAIN
     Route: 048
     Dates: end: 20120101
  2. XANAX [Concomitant]
     Indication: DYSTHYMIC DISORDER
     Route: 065
  3. BACLOFEN [Concomitant]
     Indication: ALCOHOL DETOXIFICATION
     Route: 065
     Dates: start: 20110201
  4. ZOLPIDEM [Concomitant]
     Indication: PRODUCT USED FOR UNKNOWN INDICATION
     Route: 065
  5. ARTHROTEC [Concomitant]
     Indication: BACK PAIN
     Route: 065
  6. ESCITALOPRAM OXALATE [Interacting]
     Indication: DYSTHYMIC DISORDER
     Route: 048

REACTIONS (5)
  - DISORIENTATION [None]
  - DRUG INTERACTION [None]
  - SEROTONIN SYNDROME [None]
  - TACHYPHRENIA [None]
  - CONFUSIONAL STATE [None]
